FAERS Safety Report 11859478 (Version 1)
Quarter: 2015Q4

REPORT INFORMATION
  Report Type: Spontaneous
  Country: US (occurrence: US)
  Receive Date: 20151221
  Receipt Date: 20151221
  Transmission Date: 20160305
  Serious: No
  Sender: FDA-Public Use
  Company Number: US-PFIZER INC-2015457016

PATIENT
  Age: 54 Year
  Sex: Female

DRUGS (1)
  1. EFFEXOR XR [Suspect]
     Active Substance: VENLAFAXINE HYDROCHLORIDE
     Dosage: 75 MG, DAILY  (37.5MG * 2 DAILY)

REACTIONS (6)
  - Drug withdrawal syndrome [Unknown]
  - Malaise [Unknown]
  - Hyperhidrosis [Unknown]
  - Agitation [Unknown]
  - Nausea [Unknown]
  - Depression [Unknown]
